FAERS Safety Report 10049062 (Version 1)
Quarter: 2014Q1

REPORT INFORMATION
  Report Type: Spontaneous
  Country: JP (occurrence: JP)
  Receive Date: 20140331
  Receipt Date: 20140331
  Transmission Date: 20141002
  Serious: Yes (Death, Other)
  Sender: FDA-Public Use
  Company Number: JP-AMGEN-JPNSP2014022367

PATIENT
  Age: 58 Year
  Sex: Male

DRUGS (1)
  1. GRAN [Suspect]
     Indication: PRODUCT USED FOR UNKNOWN INDICATION
     Dosage: 300 MUG, UNK
     Route: 065

REACTIONS (5)
  - Bone marrow necrosis [Fatal]
  - Fat embolism [Fatal]
  - Multi-organ failure [Fatal]
  - Sepsis [Unknown]
  - Back pain [Unknown]
